FAERS Safety Report 5256617-8 (Version None)
Quarter: 2007Q1

REPORT INFORMATION
  Report Type: 
  Country: None (occurrence: None)
  Receive Date: 20070306
  Receipt Date: 20070222
  Transmission Date: 20070707
  Serious: Yes (Life-Threatening)
  Sender: FDA-Public Use
  Company Number: JP-SANOFI-SYNTHELABO-A01200701841

PATIENT
  Sex: Male
  Weight: 51 kg

DRUGS (3)
  1. FLUOROURACIL [Suspect]
     Indication: RECTAL CANCER
     Dosage: 588MG/BODY=400MG/M2 IN BOLUS AND 3528MG/BODY=2400MG/M2 AS CONTINUOUS INFUSION
     Dates: start: 20061206, end: 20061207
  2. LEUCOVORIN CALCIUM [Suspect]
     Indication: RECTAL CANCER
     Route: 042
     Dates: start: 20061206, end: 20061206
  3. OXALIPLATIN [Suspect]
     Indication: RECTAL CANCER
     Route: 041
     Dates: start: 20061206, end: 20061206

REACTIONS (1)
  - DUODENAL ULCER PERFORATION [None]
